FAERS Safety Report 4939850-1 (Version None)
Quarter: 2006Q1

REPORT INFORMATION
  Report Type: 
  Country: None (occurrence: None)
  Receive Date: 20060310
  Receipt Date: 20060216
  Transmission Date: 20060701
  Serious: Yes (Hospitalization)
  Sender: FDA-Public Use
  Company Number: US-SANOFI-SYNTHELABO-F03200600030

PATIENT
  Age: 73 Year
  Sex: Male
  Weight: 64 kg

DRUGS (12)
  1. OXALIPLATIN [Suspect]
     Indication: COLON CANCER
     Route: 042
     Dates: start: 20060104
  2. AVASTIN [Suspect]
     Indication: COLON CANCER
     Route: 042
     Dates: start: 20060104
  3. FLUOROURACIL [Suspect]
     Indication: COLON CANCER
     Dosage: 400 MG/M2 BOLUS FOLLOWED BY 2.4 G/M2 INFUSION
     Route: 042
     Dates: start: 20060104
  4. LEUCOVORIN CALCIUM [Suspect]
     Indication: COLON CANCER
     Route: 042
     Dates: start: 20060104
  5. TARCEVA [Suspect]
     Indication: COLON CANCER
     Route: 048
     Dates: start: 20051019, end: 20060104
  6. ACTOS [Concomitant]
     Dosage: UNK
     Route: 048
     Dates: start: 20051026
  7. COMPAZINE [Concomitant]
     Dosage: UNK
     Route: 065
     Dates: start: 20051012
  8. GLIPIZIDE [Concomitant]
     Dosage: UNK
     Route: 048
     Dates: start: 20051221
  9. LOMOTIL [Concomitant]
     Dosage: UNK
     Route: 048
     Dates: start: 20051214
  10. LOPRESSOR [Concomitant]
     Dosage: UNK
     Route: 048
     Dates: start: 20051003
  11. RITALIN [Concomitant]
     Dosage: UNK
     Route: 048
     Dates: start: 20051130
  12. TYLENOL (CAPLET) [Concomitant]
     Dosage: UNK
     Route: 048
     Dates: start: 20051003

REACTIONS (3)
  - BACTERAEMIA [None]
  - PULMONARY EMBOLISM [None]
  - RENAL FAILURE ACUTE [None]
